FAERS Safety Report 20770347 (Version 2)
Quarter: 2022Q3

REPORT INFORMATION
  Report Type: Spontaneous
  Country: US (occurrence: US)
  Receive Date: 20220429
  Receipt Date: 20220921
  Transmission Date: 20221027
  Serious: No
  Sender: FDA-Public Use
  Company Number: US-PFIZER INC-202200568744

PATIENT
  Age: 44 Year
  Sex: Female

DRUGS (1)
  1. IBRANCE [Suspect]
     Active Substance: PALBOCICLIB
     Dosage: 100 MG
     Dates: start: 20211110, end: 20220912

REACTIONS (1)
  - Infection [Unknown]
